FAERS Safety Report 8575857-3 (Version None)
Quarter: 2012Q2

REPORT INFORMATION
  Report Type: 
  Country: None (occurrence: None)
  Receive Date: 20120423
  Receipt Date: 20091221
  Transmission Date: 20120825
  Serious: Yes (Other)
  Sender: FDA-Public Use
  Company Number: PHEH2009US16911

PATIENT
  Age: 67 Year
  Sex: Female

DRUGS (2)
  1. EXJADE (*CGP 726670*) DISPERSIBLE TABLET [Suspect]
     Indication: MYELODYSPLASTIC SYNDROME
     Dosage: 1500 MG, UNK, ORAL
     Route: 048
     Dates: start: 20070510, end: 20091029
  2. REVLIMID [Concomitant]

REACTIONS (4)
  - PLATELET COUNT DECREASED [None]
  - MYELODYSPLASTIC SYNDROME [None]
  - DRUG INEFFECTIVE [None]
  - DISEASE PROGRESSION [None]
